FAERS Safety Report 6270402-X (Version None)
Quarter: 2009Q3

REPORT INFORMATION
  Report Type: 
  Country: None (occurrence: None)
  Receive Date: 20090716
  Receipt Date: 20090713
  Transmission Date: 20100115
  Serious: Yes (Other)
  Sender: FDA-Public Use
  Company Number: US-JNJCH-2009019109

PATIENT
  Sex: Female

DRUGS (2)
  1. LISTERINE WHITENING PRE-BRUSH RINSE [Suspect]
     Indication: DRUG USE FOR UNKNOWN INDICATION
     Dosage: TEXT:ONCE
     Route: 048
  2. ANTI-ASTHMATICS [Concomitant]
     Indication: ASTHMA
     Dosage: TEXT:DAILY
     Route: 065

REACTIONS (1)
  - ASTHMA [None]
